FAERS Safety Report 22244928 (Version 1)
Quarter: 2023Q2

REPORT INFORMATION
  Report Type: Spontaneous
  Country: US (occurrence: US)
  Receive Date: 20230424
  Receipt Date: 20230424
  Transmission Date: 20230722
  Serious: Yes (Life-Threatening, Hospitalization, Other)
  Sender: FDA-Public Use
  Company Number: US-C B Fleet Co Inc-202304-US-001134

PATIENT
  Age: 69 Year
  Sex: Male

DRUGS (1)
  1. LUDENS SUGAR FREE WILD CHERRY THROAT [Suspect]
     Active Substance: PECTIN
     Indication: Cough
     Dosage: ONE LOZENGE
     Route: 048

REACTIONS (4)
  - Diarrhoea [Recovered/Resolved]
  - Hypersensitivity [Recovered/Resolved]
  - Confusional state [Recovered/Resolved]
  - Product use in unapproved indication [None]
